FAERS Safety Report 5161447-1 (Version None)
Quarter: 2006Q4

REPORT INFORMATION
  Report Type: 
  Country: None (occurrence: None)
  Receive Date: 20061130
  Receipt Date: 20060809
  Transmission Date: 20070319
  Serious: No
  Sender: FDA-Public Use
  Company Number: US-GLAXOSMITHKLINE-A0616031A

PATIENT
  Sex: Female

DRUGS (6)
  1. WELLBUTRIN XL [Suspect]
     Indication: DEPRESSION
     Dosage: 150MG PER DAY
     Route: 048
     Dates: start: 20060401
  2. LISINOPRIL [Concomitant]
  3. TEMAZEPAM [Concomitant]
  4. LEVOXYL [Concomitant]
  5. PREDNISONE TAB [Concomitant]
  6. PRAVACHOL [Concomitant]

REACTIONS (1)
  - INTRAOCULAR PRESSURE INCREASED [None]
